FAERS Safety Report 4289775-2 (Version None)
Quarter: 2004Q1

REPORT INFORMATION
  Report Type: 
  Country: None (occurrence: None)
  Receive Date: 20040210
  Receipt Date: 20031003
  Transmission Date: 20041129
  Serious: Yes (Hospitalization)
  Sender: FDA-Public Use
  Company Number: BE-GLAXOSMITHKLINE-B0310915A

PATIENT
  Age: 13 Year
  Sex: Male
  Weight: 73 kg

DRUGS (4)
  1. LAMICTAL [Suspect]
     Indication: EPILEPSY
     Route: 048
     Dates: start: 20020501
  2. SODIUM VALPROATE [Concomitant]
     Indication: EPILEPSY
     Route: 065
  3. CITALOPRAM [Concomitant]
     Route: 065
  4. PIPAMPERON [Concomitant]

REACTIONS (4)
  - AREFLEXIA [None]
  - BLOOD PRESSURE ABNORMAL [None]
  - NEPHROTIC SYNDROME [None]
  - WEIGHT INCREASED [None]
